FAERS Safety Report 12772651 (Version 2)
Quarter: 2016Q4

REPORT INFORMATION
  Report Type: Spontaneous
  Country: US (occurrence: US)
  Receive Date: 20160922
  Receipt Date: 20161013
  Transmission Date: 20170207
  Serious: Yes (Other)
  Sender: FDA-Public Use
  Company Number: US-BAUSCH-BL-2016-022137

PATIENT
  Age: 55 Year
  Sex: Male
  Weight: 73.09 kg

DRUGS (2)
  1. PROVENGE [Suspect]
     Active Substance: SIPULEUCEL-T
     Indication: PROSTATE CANCER
     Route: 042
     Dates: start: 20160906, end: 20160906
  2. KEPPRA [Concomitant]
     Active Substance: LEVETIRACETAM
     Indication: EPILEPSY
     Route: 065

REACTIONS (6)
  - Musculoskeletal stiffness [Recovered/Resolved]
  - Dyspnoea [Recovered/Resolved]
  - Malaise [Recovered/Resolved]
  - Chest pain [Recovered/Resolved]
  - Paralysis [Recovered/Resolved]
  - Culture positive [Unknown]

NARRATIVE: CASE EVENT DATE: 20160906
